FAERS Safety Report 7892608-6 (Version None)
Quarter: 2011Q4

REPORT INFORMATION
  Report Type: 
  Country: None (occurrence: None)
  Receive Date: 20111025
  Receipt Date: 20101103
  Transmission Date: 20120403
  Serious: Yes (Hospitalization, Other)
  Sender: FDA-Public Use
  Company Number: 2011030074

PATIENT
  Age: 13 Year

DRUGS (1)
  1. VIVAGLOBIN [Suspect]
     Indication: HYPOGAMMAGLOBULINAEMIA
     Dosage: (6.4 G  1X/MONTH, INFUSED WEEKLY IN 2 SITES OVER 3-5 MNUTES SUBCUTANEOUS)
     Route: 058
     Dates: start: 20061031

REACTIONS (3)
  - ROTAVIRUS INFECTION [None]
  - STAPHYLOCOCCAL INFECTION [None]
  - FURUNCLE [None]
